FAERS Safety Report 18584795 (Version 3)
Quarter: 2021Q1

REPORT INFORMATION
  Report Type: Other
  Country: RU (occurrence: RU)
  Receive Date: 20201207
  Receipt Date: 20210113
  Transmission Date: 20210419
  Serious: Yes (Other)
  Sender: FDA-Public Use
  Company Number: RU-ROCHE-2725553

PATIENT
  Sex: Female

DRUGS (2)
  1. COBIMETINIB. [Suspect]
     Active Substance: COBIMETINIB
     Indication: MALIGNANT MELANOMA
     Route: 065
     Dates: start: 20201022, end: 20201029
  2. VEMURAFENIB. [Suspect]
     Active Substance: VEMURAFENIB
     Indication: MALIGNANT MELANOMA
     Route: 065
     Dates: start: 20201022, end: 20201029

REACTIONS (3)
  - Photosensitivity reaction [Unknown]
  - Angioedema [Unknown]
  - Skin toxicity [Unknown]

NARRATIVE: CASE EVENT DATE: 20201022
